FAERS Safety Report 19477470 (Version 2)
Quarter: 2021Q3

REPORT INFORMATION
  Report Type: Report from Study
  Country: MX (occurrence: MX)
  Receive Date: 20210630
  Receipt Date: 20210830
  Transmission Date: 20211014
  Serious: Yes (Other)
  Sender: FDA-Public Use
  Company Number: NVSC2021MX079016

PATIENT
  Age: 7 Year
  Sex: Female
  Weight: 32.6 kg

DRUGS (3)
  1. REVOLADE [Suspect]
     Active Substance: ELTROMBOPAG OLAMINE
     Indication: THROMBOCYTOPENIC PURPURA
     Dosage: 25 MG, QD (1 DF) (FOR 3 MONTHS)
     Route: 048
     Dates: start: 202007, end: 202102
  2. MYFORTIC [Suspect]
     Active Substance: MYCOPHENOLATE SODIUM
     Indication: SYSTEMIC LUPUS ERYTHEMATOSUS
     Dosage: 1 DF, Q12H
     Route: 065
  3. REVOLADE [Suspect]
     Active Substance: ELTROMBOPAG OLAMINE
     Dosage: 25 MG
     Route: 065

REACTIONS (5)
  - Gingival bleeding [Unknown]
  - Product use in unapproved indication [Unknown]
  - Platelet count decreased [Unknown]
  - Systemic lupus erythematosus [Unknown]
  - Petechiae [Not Recovered/Not Resolved]

NARRATIVE: CASE EVENT DATE: 20210325
